FAERS Safety Report 25860067 (Version 1)
Quarter: 2025Q3

REPORT INFORMATION
  Report Type: Spontaneous
  Country: EU (occurrence: EU)
  Receive Date: 20250929
  Receipt Date: 20250929
  Transmission Date: 20251020
  Serious: Yes (Other)
  Sender: MERCK SHARP & DOHME LLC
  Company Number: EU-009507513-2333126

PATIENT
  Age: 4 Year
  Sex: Female
  Weight: 16.6 kg

DRUGS (1)
  1. PREVYMIS [Suspect]
     Active Substance: LETERMOVIR
     Route: 048

REACTIONS (2)
  - Neoplasm malignant [Unknown]
  - Wrong technique in product usage process [Unknown]
